FAERS Safety Report 6567816-7 (Version None)
Quarter: 2010Q1

REPORT INFORMATION
  Report Type: 
  Country: None (occurrence: None)
  Receive Date: 20100203
  Receipt Date: 20100122
  Transmission Date: 20100710
  Serious: Yes (Other)
  Sender: FDA-Public Use
  Company Number: US-JNJFOC-20100108977

PATIENT
  Age: 81 Year
  Sex: Male
  Weight: 78.02 kg

DRUGS (1)
  1. ST. JOSEPH ENTERIC COATED [Suspect]
     Indication: ANTICOAGULANT THERAPY
     Route: 048

REACTIONS (4)
  - AMNESIA [None]
  - CEREBROVASCULAR ACCIDENT [None]
  - HEADACHE [None]
  - PRODUCT QUALITY ISSUE [None]
